FAERS Safety Report 11437660 (Version 1)
Quarter: 2015Q3

REPORT INFORMATION
  Report Type: Spontaneous
  Country: US (occurrence: US)
  Receive Date: 20150821
  Receipt Date: 20150821
  Transmission Date: 20151125
  Serious: Yes (Hospitalization, Other)
  Sender: FDA-Public Use
  Company Number: US-ELI_LILLY_AND_COMPANY-US200706001433

PATIENT
  Sex: Female

DRUGS (2)
  1. ALCOHOL. [Concomitant]
     Active Substance: ALCOHOL
  2. CYMBALTA [Suspect]
     Active Substance: DULOXETINE HYDROCHLORIDE
     Dosage: UNK, UNK

REACTIONS (1)
  - Suicide attempt [Unknown]
